FAERS Safety Report 6900841-2 (Version None)
Quarter: 2010Q3

REPORT INFORMATION
  Report Type: 
  Country: None (occurrence: None)
  Receive Date: 20100803
  Receipt Date: 20100720
  Transmission Date: 20110219
  Serious: Yes (Life-Threatening, Hospitalization)
  Sender: FDA-Public Use
  Company Number: A0567297A

PATIENT
  Sex: Female
  Weight: 64 kg

DRUGS (3)
  1. GW679769 [Suspect]
     Dosage: 50MG SINGLE DOSE
     Route: 048
     Dates: start: 20050720
  2. ONDANSETRON [Suspect]
     Dosage: 4MG SINGLE DOSE
     Route: 042
     Dates: start: 20050720
  3. MORPHINE [Concomitant]
     Dosage: 20MG AS REQUIRED
     Route: 042
     Dates: start: 20050720, end: 20050720

REACTIONS (8)
  - CREPITATIONS [None]
  - DYSPNOEA [None]
  - ELECTROCARDIOGRAM ST SEGMENT DEPRESSION [None]
  - LARYNGOSPASM [None]
  - OXYGEN SATURATION DECREASED [None]
  - PULMONARY OEDEMA [None]
  - VENOUS PRESSURE JUGULAR INCREASED [None]
  - WHEEZING [None]
